FAERS Safety Report 17418852 (Version 1)
Quarter: 2020Q1

REPORT INFORMATION
  Report Type: Report from Study
  Country: US (occurrence: US)
  Receive Date: 20200214
  Receipt Date: 20200214
  Transmission Date: 20200409
  Serious: Yes (Death)
  Sender: FDA-Public Use
  Company Number: US-ASTRAZENECA-2020SE21444

PATIENT
  Age: 17593 Day
  Sex: Male
  Weight: 65.8 kg

DRUGS (9)
  1. PHENERGAN [Concomitant]
     Active Substance: PROMETHAZINE HYDROCHLORIDE
  2. XARELTO [Concomitant]
     Active Substance: RIVAROXABAN
  3. TAGRISSO [Suspect]
     Active Substance: OSIMERTINIB
     Indication: BONE CANCER
     Route: 048
     Dates: start: 20191112
  4. CEFUROXIM [Concomitant]
     Active Substance: CEFUROXIME
  5. TAGRISSO [Suspect]
     Active Substance: OSIMERTINIB
     Indication: LUNG CARCINOMA CELL TYPE UNSPECIFIED STAGE 0
     Route: 048
     Dates: start: 20191112
  6. FUROSIMIDE [Concomitant]
     Active Substance: FUROSEMIDE
  7. COLCHICINE. [Concomitant]
     Active Substance: COLCHICINE
  8. METOPROLOL. [Concomitant]
     Active Substance: METOPROLOL
  9. MARINOL [Concomitant]
     Active Substance: DRONABINOL

REACTIONS (1)
  - Death [Fatal]

NARRATIVE: CASE EVENT DATE: 20200128
